FAERS Safety Report 4603910-5 (Version None)
Quarter: 2005Q1

REPORT INFORMATION
  Report Type: 
  Country: None (occurrence: None)
  Receive Date: 20050308
  Receipt Date: 20050223
  Transmission Date: 20050727
  Serious: Yes (Other)
  Sender: FDA-Public Use
  Company Number: 2005036935

PATIENT
  Sex: Female

DRUGS (3)
  1. GEODON [Suspect]
     Indication: ILL-DEFINED DISORDER
     Dosage: 20 MG, ORAL
     Route: 048
  2. ALPRAZOLAM [Concomitant]
  3. SERTRALINE HCL [Concomitant]

REACTIONS (2)
  - NEOPLASM GROWTH ACCELERATED [None]
  - THERAPEUTIC RESPONSE UNEXPECTED [None]
